FAERS Safety Report 5473837-8 (Version None)
Quarter: 2007Q4

REPORT INFORMATION
  Report Type: 
  Country: None (occurrence: None)
  Receive Date: 20071001
  Receipt Date: 20070919
  Transmission Date: 20080405
  Serious: Yes (Other)
  Sender: FDA-Public Use
  Company Number: US-PFIZER INC-2007078741

PATIENT
  Sex: Female
  Weight: 67.1 kg

DRUGS (11)
  1. CHANTIX [Suspect]
     Indication: SMOKING CESSATION THERAPY
  2. MYOBLOC [Concomitant]
     Indication: TORTICOLLIS
  3. SEROQUEL [Concomitant]
  4. TRILEPTAL [Concomitant]
  5. ABILIFY [Concomitant]
  6. AMBIEN [Concomitant]
  7. FOSAMAX [Concomitant]
  8. BACLOFEN [Concomitant]
  9. ACIPHEX [Concomitant]
  10. CRESTOR [Concomitant]
     Indication: BLOOD CHOLESTEROL
  11. FENTANYL [Concomitant]

REACTIONS (4)
  - FOOT OPERATION [None]
  - GASTRIC DISORDER [None]
  - NAUSEA [None]
  - PALPITATIONS [None]
